FAERS Safety Report 6595089-8 (Version None)
Quarter: 2010Q1

REPORT INFORMATION
  Report Type: 
  Country: None (occurrence: None)
  Receive Date: 20100222
  Receipt Date: 20100210
  Transmission Date: 20100710
  Serious: Yes (Life-Threatening, Hospitalization)
  Sender: FDA-Public Use
  Company Number: NL-ELI_LILLY_AND_COMPANY-NL201002005065

PATIENT
  Sex: Female
  Weight: 60 kg

DRUGS (1)
  1. PROZAC [Suspect]
     Indication: DEPRESSION
     Dosage: 40 MG, 2/D
     Dates: start: 20050101

REACTIONS (4)
  - DISSOCIATIVE DISORDER [None]
  - EMOTIONAL DISORDER [None]
  - INTENTIONAL SELF-INJURY [None]
  - SUICIDAL IDEATION [None]
